FAERS Safety Report 14242068 (Version 1)
Quarter: 2017Q4

REPORT INFORMATION
  Report Type: Spontaneous
  Country: AT (occurrence: AT)
  Receive Date: 20171201
  Receipt Date: 20171201
  Transmission Date: 20180321
  Serious: Yes (Hospitalization)
  Sender: FDA-Public Use
  Company Number: AT-TEVA-2017-AT-827962

PATIENT
  Age: 54 Year
  Sex: Male

DRUGS (2)
  1. HEPARIN [Suspect]
     Active Substance: HEPARIN SODIUM
     Indication: ANTICOAGULANT THERAPY
     Route: 065
  2. PROTAMINE SULFATE. [Interacting]
     Active Substance: PROTAMINE SULFATE
     Indication: ANTICOAGULANT THERAPY
     Dosage: 50MG ADMINISTERED TWICE
     Route: 065

REACTIONS (3)
  - Thrombocytopenia [Recovered/Resolved]
  - Drug interaction [Recovered/Resolved]
  - Drug specific antibody [Unknown]
